FAERS Safety Report 4436154-0 (Version None)
Quarter: 2004Q3

REPORT INFORMATION
  Report Type: 
  Country: None (occurrence: None)
  Receive Date: 20040728
  Receipt Date: 20040527
  Transmission Date: 20050211
  Serious: Yes (Hospitalization, Other)
  Sender: FDA-Public Use
  Company Number: 206616

PATIENT
  Age: 60 Year
  Sex: Male

DRUGS (10)
  1. RITUXAN [Suspect]
     Indication: LYMPHOMA
     Dosage: 75 MG/HR, INTRAVENOUS
     Route: 042
  2. RITUXAN [Suspect]
     Dates: start: 20040525, end: 20040525
  3. CYCLOPHOSPHAMIDE [Concomitant]
  4. DOXORUBICIN HYDROCHLORIDE [Concomitant]
  5. VINCRISTINE [Concomitant]
  6. PREDNISONE [Concomitant]
  7. CIMETIDINE [Concomitant]
  8. DECADRON [Concomitant]
  9. TYLENOL [Concomitant]
  10. DEMEROL [Concomitant]

REACTIONS (1)
  - ANGIONEUROTIC OEDEMA [None]
